FAERS Safety Report 6078248-2 (Version None)
Quarter: 2009Q1

REPORT INFORMATION
  Report Type: 
  Country: None (occurrence: None)
  Receive Date: 20090213
  Receipt Date: 20090204
  Transmission Date: 20090719
  Serious: Yes (Other)
  Sender: FDA-Public Use
  Company Number: IE-PFIZER INC-2009168890

PATIENT

DRUGS (2)
  1. CABASER [Suspect]
     Indication: PARKINSON'S DISEASE
     Route: 048
     Dates: start: 20020101, end: 20090122
  2. SINEMET CR [Concomitant]

REACTIONS (3)
  - IMPULSIVE BEHAVIOUR [None]
  - PARANOIA [None]
  - SEXUAL DYSFUNCTION [None]
